FAERS Safety Report 9114835 (Version 1)
Quarter: 2013Q1

REPORT INFORMATION
  Report Type: Spontaneous
  Country: US (occurrence: None)
  Receive Date: 20130129
  Receipt Date: 20130129
  Transmission Date: 20140127
  Serious: Yes (Death)
  Sender: FDA-Public Use
  Company Number: ADR-2013-00122

PATIENT
  Age: 44 Year
  Sex: Male

DRUGS (4)
  1. BACLOFEN INTRATHECAL [Suspect]
     Dosage: 159.95 MCG/DAY
  2. DILAUDID [Concomitant]
  3. BUPIVACAINE [Concomitant]
  4. CLONIDINE [Concomitant]

REACTIONS (1)
  - Colorectal cancer metastatic [None]
